FAERS Safety Report 15198227 (Version 4)
Quarter: 2019Q1

REPORT INFORMATION
  Report Type: Spontaneous
  Country: CA (occurrence: CA)
  Receive Date: 20180725
  Receipt Date: 20190308
  Transmission Date: 20190417
  Serious: Yes (Other)
  Sender: FDA-Public Use
  Company Number: CA-PFIZER INC-2018169082

PATIENT
  Age: 61 Year
  Sex: Male

DRUGS (3)
  1. LEFLUNOMIDE. [Concomitant]
     Active Substance: LEFLUNOMIDE
     Indication: RHEUMATOID ARTHRITIS
     Dosage: 10 MG, 2X/DAY
  2. PLAQUENIL [Concomitant]
     Active Substance: HYDROXYCHLOROQUINE SULFATE
     Indication: RHEUMATOID ARTHRITIS
     Dosage: 200 MG, 2X/DAY
  3. XELJANZ [Suspect]
     Active Substance: TOFACITINIB CITRATE
     Indication: RHEUMATOID ARTHRITIS
     Dosage: 5 MG, 2X/DAY
     Route: 048
     Dates: start: 20180410

REACTIONS (14)
  - Blood iron decreased [Unknown]
  - Rash [Unknown]
  - Therapeutic response unexpected [Unknown]
  - Renal impairment [Recovering/Resolving]
  - Pre-existing condition improved [Unknown]
  - Blood pressure decreased [Unknown]
  - Hyperaesthesia [Recovered/Resolved]
  - Sensitive skin [Unknown]
  - Rash pruritic [Recovering/Resolving]
  - Skin haemorrhage [Recovered/Resolved]
  - Heart rate decreased [Unknown]
  - Haematospermia [Unknown]
  - Diarrhoea [Recovered/Resolved]
  - Musculoskeletal pain [Unknown]

NARRATIVE: CASE EVENT DATE: 20180413
